FAERS Safety Report 12091491 (Version 1)
Quarter: 2016Q1

REPORT INFORMATION
  Report Type: Spontaneous
  Country: NL (occurrence: NL)
  Receive Date: 20160218
  Receipt Date: 20160218
  Transmission Date: 20160526
  Serious: Yes (Other)
  Sender: FDA-Public Use
  Company Number: NL-PFIZER INC-2016089330

PATIENT
  Age: 33 Year
  Sex: Female
  Weight: 65 kg

DRUGS (3)
  1. ELOCON [Suspect]
     Active Substance: MOMETASONE FUROATE
     Indication: ECZEMA
     Dosage: 1 DF, UNK
     Route: 003
     Dates: start: 2012, end: 2015
  2. HYDROCORTISONE SODIUM SUCCINATE [Suspect]
     Active Substance: HYDROCORTISONE SODIUM SUCCINATE
     Indication: ECZEMA
     Dosage: 1 DF, UNK
     Route: 003
     Dates: start: 2012, end: 2015
  3. PROTOPIC [Suspect]
     Active Substance: TACROLIMUS
     Indication: ECZEMA
     Dosage: 1 DF, UNK
     Route: 003
     Dates: start: 2013, end: 2014

REACTIONS (3)
  - Eczema [Recovering/Resolving]
  - Condition aggravated [Recovering/Resolving]
  - Steroid withdrawal syndrome [Recovering/Resolving]

NARRATIVE: CASE EVENT DATE: 20141222
